FAERS Safety Report 22709641 (Version 2)
Quarter: 2024Q3

REPORT INFORMATION
  Report Type: Report from Study
  Country: DE (occurrence: DE)
  Receive Date: 20230717
  Receipt Date: 20240701
  Transmission Date: 20241017
  Serious: Yes (Hospitalization, Other)
  Sender: ABBVIE
  Company Number: DE-ABBVIE-5328698

PATIENT
  Age: 63 Year
  Sex: Male
  Weight: 114 kg

DRUGS (1)
  1. SKYRIZI [Suspect]
     Active Substance: RISANKIZUMAB-RZAA
     Indication: Psoriasis
     Route: 058
     Dates: start: 20220202

REACTIONS (9)
  - Osteoarthritis [Recovered/Resolved]
  - Pain [Unknown]
  - Hypoaesthesia [Unknown]
  - Palpitations [Not Recovered/Not Resolved]
  - Carpal tunnel syndrome [Recovered/Resolved]
  - Chronic obstructive pulmonary disease [Unknown]
  - Carpal tunnel syndrome [Unknown]
  - Tachycardia [Not Recovered/Not Resolved]
  - Psoriasis [Not Recovered/Not Resolved]

NARRATIVE: CASE EVENT DATE: 20230208
